FAERS Safety Report 4883207-9 (Version None)
Quarter: 2006Q1

REPORT INFORMATION
  Report Type: 
  Country: None (occurrence: None)
  Receive Date: 20060117
  Receipt Date: 20060117
  Transmission Date: 20060701
  Serious: No
  Sender: FDA-Public Use
  Company Number: None

PATIENT
  Age: 71 Year
  Sex: Male
  Weight: 77.5651 kg

DRUGS (6)
  1. TARGRETIN [Suspect]
     Indication: CARCINOMA IN SITU OF SKIN
     Dosage: 10 TABS QD PO
     Route: 048
     Dates: start: 20051018, end: 20060110
  2. TARGRETIN [Suspect]
     Indication: METASTASIS
     Dosage: 10 TABS QD PO
     Route: 048
     Dates: start: 20051018, end: 20060110
  3. TAXOTERE [Suspect]
     Dosage: 56.7 MG QW X3 /4 WK CYCLE IV DRIP
     Route: 041
     Dates: start: 20051018, end: 20060110
  4. SYNTHROID [Concomitant]
  5. LIPITOR [Concomitant]
  6. NYSTATIN [Concomitant]

REACTIONS (2)
  - LEUKOPENIA [None]
  - NEUTROPENIA [None]
